FAERS Safety Report 7162736-1 (Version None)
Quarter: 2010Q4

REPORT INFORMATION
  Report Type: 
  Country: None (occurrence: None)
  Receive Date: 20101202
  Receipt Date: 20101117
  Transmission Date: 20110411
  Serious: Yes (Other)
  Sender: FDA-Public Use
  Company Number: ACO_20464_2010

PATIENT
  Age: 63 Year
  Sex: Female
  Weight: 125.2 kg

DRUGS (7)
  1. AMPYRA [Suspect]
     Indication: GAIT DISTURBANCE
     Dosage: 10 MG, BID, ORAL
     Route: 048
     Dates: start: 20100701, end: 20101116
  2. AMPYRA [Suspect]
     Indication: MULTIPLE SCLEROSIS
     Dosage: 10 MG, BID, ORAL
     Route: 048
     Dates: start: 20100701, end: 20101116
  3. TYSABRI [Concomitant]
  4. NORVASC [Concomitant]
  5. VYTORIN [Concomitant]
  6. AMBIEN [Concomitant]
  7. DETROL [Concomitant]

REACTIONS (4)
  - CHEST DISCOMFORT [None]
  - EXTRASYSTOLES [None]
  - PARAESTHESIA [None]
  - STRESS [None]
